FAERS Safety Report 23466444 (Version 1)
Quarter: 2024Q1

REPORT INFORMATION
  Report Type: Spontaneous
  Country: US (occurrence: None)
  Receive Date: 20240131
  Receipt Date: 20240131
  Transmission Date: 20240410
  Serious: No
  Sender: FDA-Public Use
  Company Number: None

PATIENT
  Sex: Female

DRUGS (1)
  1. OJJAARA [Suspect]
     Active Substance: MOMELOTINIB DIHYDROCHLORIDE MONOHYDRATE
     Indication: Myelofibrosis
     Dosage: FREQUENCY : DAILY;?
     Route: 048

REACTIONS (6)
  - Dizziness [None]
  - Decreased appetite [None]
  - Asthenia [None]
  - Fatigue [None]
  - Therapy interrupted [None]
  - Drug ineffective [None]
